FAERS Safety Report 16519356 (Version 2)
Quarter: 2019Q3

REPORT INFORMATION
  Report Type: Spontaneous
  Country: PL (occurrence: PL)
  Receive Date: 20190702
  Receipt Date: 20190711
  Transmission Date: 20191004
  Serious: Yes (Life-Threatening, Hospitalization)
  Sender: FDA-Public Use
  Company Number: PL-MYLANLABS-2019M1061597

PATIENT
  Age: 58 Year
  Sex: Male

DRUGS (2)
  1. METFORMIN [Suspect]
     Active Substance: METFORMIN HYDROCHLORIDE
     Indication: TYPE 2 DIABETES MELLITUS
     Dosage: 850 MILLIGRAM, BID
     Route: 065
  2. METFORMIN [Suspect]
     Active Substance: METFORMIN HYDROCHLORIDE
     Dosage: 60 DOSAGE FORM, TOTAL
     Route: 048

REACTIONS (13)
  - Hypoglycaemia [Recovered/Resolved]
  - Overdose [Unknown]
  - Suicide attempt [Unknown]
  - Toxicity to various agents [Recovered/Resolved]
  - Atrial fibrillation [Recovered/Resolved]
  - Hypotension [Unknown]
  - Cardiopulmonary failure [Recovered/Resolved]
  - Renal failure [Recovering/Resolving]
  - Lactic acidosis [Recovered/Resolved]
  - Respiratory failure [Unknown]
  - Cardiovascular insufficiency [Unknown]
  - Circulatory collapse [Unknown]
  - Altered state of consciousness [Recovered/Resolved]
